FAERS Safety Report 24765112 (Version 1)
Quarter: 2024Q4

REPORT INFORMATION
  Report Type: Spontaneous
  Country: DE (occurrence: DE)
  Receive Date: 20241223
  Receipt Date: 20241223
  Transmission Date: 20250115
  Serious: Yes (Hospitalization, Other)
  Sender: AUROBINDO
  Company Number: DE-ABBVIE-6033677

PATIENT
  Sex: Female

DRUGS (14)
  1. DICLOFENAC [Suspect]
     Active Substance: DICLOFENAC
     Indication: Product used for unknown indication
     Dosage: UNK
     Route: 065
  2. HUMIRA [Suspect]
     Active Substance: ADALIMUMAB
     Indication: Product used for unknown indication
     Dosage: 40 MILLIGRAM
     Route: 058
     Dates: start: 20180928, end: 20190104
  3. HUMIRA [Suspect]
     Active Substance: ADALIMUMAB
     Dosage: 40 MILLIGRAM
     Route: 058
     Dates: start: 20190312
  4. IBUPROFEN [Concomitant]
     Active Substance: IBUPROFEN
     Indication: Product used for unknown indication
     Dosage: 1200 MILLIGRAM
     Route: 065
     Dates: start: 20160101, end: 2016
  5. IBUPROFEN [Concomitant]
     Active Substance: IBUPROFEN
     Dosage: 800 MILLIGRAM
     Route: 065
     Dates: start: 2016, end: 20181126
  6. IBUPROFEN [Concomitant]
     Active Substance: IBUPROFEN
     Dosage: 600 MILLIGRAM
     Route: 065
     Dates: start: 20230201
  7. ETORICOXIB [Concomitant]
     Active Substance: ETORICOXIB
     Indication: Product used for unknown indication
     Dosage: 90 MILLIGRAM
     Route: 065
     Dates: start: 20181217
  8. ADALIMUMAB [Concomitant]
     Active Substance: ADALIMUMAB
     Indication: Product used for unknown indication
     Dosage: 40 MILLIGRAM
     Route: 065
     Dates: start: 20190312, end: 20190702
  9. ADALIMUMAB [Concomitant]
     Active Substance: ADALIMUMAB
     Dosage: 40 MILLIGRAM
     Route: 065
     Dates: start: 20190813
  10. IDACIO [Concomitant]
     Active Substance: ADALIMUMAB-AACF
     Indication: Product used for unknown indication
     Dosage: 40 MILLIGRAM
     Route: 065
     Dates: start: 20200913, end: 20210201
  11. IDACIO [Concomitant]
     Active Substance: ADALIMUMAB-AACF
     Dosage: 40 MILLIGRAM
     Route: 065
     Dates: start: 20210603, end: 20210716
  12. IDACIO [Concomitant]
     Active Substance: ADALIMUMAB-AACF
     Dosage: 40 MILLIGRAM
     Route: 065
     Dates: start: 20210905, end: 20220715
  13. IDACIO [Concomitant]
     Active Substance: ADALIMUMAB-AACF
     Dosage: 40 MILLIGRAM
     Route: 065
     Dates: start: 20221111
  14. HYRIMOZ [Concomitant]
     Active Substance: ADALIMUMAB-ADAZ
     Indication: Product used for unknown indication
     Dosage: 40 MILLIGRAM
     Route: 065
     Dates: start: 20200316

REACTIONS (1)
  - Atrial fibrillation [Unknown]

NARRATIVE: CASE EVENT DATE: 20210521
